FAERS Safety Report 13465295 (Version 2)
Quarter: 2017Q2

REPORT INFORMATION
  Report Type: Spontaneous
  Country: FR (occurrence: FR)
  Receive Date: 20170421
  Receipt Date: 20170517
  Transmission Date: 20170830
  Serious: Yes (Hospitalization)
  Sender: FDA-Public Use
  Company Number: FR-ROCHE-1923121

PATIENT
  Age: 89 Year
  Sex: Female

DRUGS (3)
  1. PACLITAXEL. [Concomitant]
     Active Substance: PACLITAXEL
     Dosage: FIRST CYCLE?80MG/M2
     Route: 065
     Dates: start: 20170406
  2. PERJETA [Concomitant]
     Active Substance: PERTUZUMAB
     Dosage: FIRST CYCLE?LOADING DOSE OF 820 MG INFUSED FROM 11:05 AM TO 12:20 PM
     Route: 065
     Dates: start: 20170406
  3. HERCEPTIN [Suspect]
     Active Substance: TRASTUZUMAB
     Indication: BREAST CANCER METASTATIC
     Dosage: FROM 1 PM TO 2:10 PM?FIRST CYCLE?LOADING DOSE OF 8MG/KG I.E. 462 MG PLANNED, START OF THE INFUSION A
     Route: 042
     Dates: start: 20170406

REACTIONS (4)
  - Hypertension [Recovered/Resolved]
  - Septic shock [Recovered/Resolved]
  - Tremor [Recovered/Resolved]
  - Hyperthermia [Recovered/Resolved]

NARRATIVE: CASE EVENT DATE: 20170406
